FAERS Safety Report 6398486-9 (Version None)
Quarter: 2009Q4

REPORT INFORMATION
  Report Type: 
  Country: None (occurrence: None)
  Receive Date: 20091013
  Receipt Date: 20091006
  Transmission Date: 20100525
  Serious: Yes (Hospitalization)
  Sender: FDA-Public Use
  Company Number: B0591042A

PATIENT
  Sex: Male

DRUGS (5)
  1. ESKAZOLE [Suspect]
     Indication: INFECTION PARASITIC
     Dosage: 200MG THREE TIMES PER DAY
     Route: 048
     Dates: start: 20090327, end: 20090724
  2. TAKEPRON [Concomitant]
     Indication: STEROID THERAPY
     Dosage: 15MG PER DAY
     Route: 048
     Dates: start: 20090320, end: 20090721
  3. SOLU-MEDROL [Concomitant]
     Indication: STEROID THERAPY
     Dosage: 500MG PER DAY
     Route: 042
     Dates: start: 20090320, end: 20090322
  4. PREDONINE [Concomitant]
     Indication: STEROID THERAPY
     Dosage: 40MG PER DAY
     Route: 048
     Dates: start: 20090323, end: 20090325
  5. METHYCOBAL [Concomitant]
     Dosage: 1500MCG PER DAY
     Route: 048
     Dates: start: 20090320, end: 20090817

REACTIONS (1)
  - HEPATIC FUNCTION ABNORMAL [None]
